FAERS Safety Report 13460585 (Version 3)
Quarter: 2017Q2

REPORT INFORMATION
  Report Type: Spontaneous
  Country: US (occurrence: US)
  Receive Date: 20170420
  Receipt Date: 20170620
  Transmission Date: 20170830
  Serious: No
  Sender: FDA-Public Use
  Company Number: US-PFIZER INC-2017171529

PATIENT
  Age: 76 Year
  Sex: Female
  Weight: 70.75 kg

DRUGS (3)
  1. IBRANCE [Suspect]
     Active Substance: PALBOCICLIB
     Dosage: 125 MG, CYCLIC; (DAY 1-21 Q 28 DAYS)
     Route: 048
     Dates: start: 20170327
  2. IBRANCE [Suspect]
     Active Substance: PALBOCICLIB
     Indication: BREAST CANCER
     Dosage: 125 MG, CYCLIC; (DAY 1-21 Q 28 DAYS)
     Route: 048
     Dates: start: 20170327
  3. IBRANCE [Suspect]
     Active Substance: PALBOCICLIB
     Dosage: 125 MG, CYCLIC; (DAY 1-21 Q 28 DAYS)
     Route: 048
     Dates: start: 20170327

REACTIONS (8)
  - Upper respiratory tract infection [Recovered/Resolved]
  - Sneezing [Unknown]
  - Red blood cell count decreased [Not Recovered/Not Resolved]
  - White blood cell count decreased [Not Recovered/Not Resolved]
  - Epistaxis [Unknown]
  - Herpes simplex [Not Recovered/Not Resolved]
  - Scab [Unknown]
  - Platelet count decreased [Not Recovered/Not Resolved]
